FAERS Safety Report 26187946 (Version 1)
Quarter: 2025Q4

REPORT INFORMATION
  Report Type: Spontaneous
  Country: CH (occurrence: CH)
  Receive Date: 20251222
  Receipt Date: 20251222
  Transmission Date: 20260118
  Serious: Yes (Other)
  Sender: SANOFI AVENTIS
  Company Number: None

PATIENT
  Age: 34 Year
  Sex: Male
  Weight: 84 kg

DRUGS (7)
  1. DUPIXENT [Suspect]
     Active Substance: DUPILUMAB
     Indication: Eosinophilic granulomatosis with polyangiitis
     Dosage: 300 MG, QOW; 1 SEPARATED DOSES
     Route: 058
     Dates: start: 20240214, end: 20241102
  2. DUPIXENT [Suspect]
     Active Substance: DUPILUMAB
     Dosage: 300 MG, QOW; 1 SEPARATED DOSES
     Route: 058
     Dates: start: 20250414, end: 20250516
  3. DUPIXENT [Suspect]
     Active Substance: DUPILUMAB
     Dosage: 300 MG, QOW
     Route: 058
     Dates: start: 20250806, end: 202509
  4. INFLECTRA [Suspect]
     Active Substance: INFLIXIMAB-DYYB
     Indication: Eosinophilic granulomatosis with polyangiitis
     Dosage: UNK
     Route: 042
     Dates: start: 20241007, end: 20250113
  5. FLUTICASONE [Concomitant]
     Active Substance: FLUTICASONE
     Route: 045
  6. CALCIUM CARBONATE\CHOLECALCIFEROL [Concomitant]
     Active Substance: CALCIUM CARBONATE\CHOLECALCIFEROL
     Dosage: 1000 MG/800 IU
     Route: 048
  7. RINVOQ [Concomitant]
     Active Substance: UPADACITINIB
     Dates: start: 202205, end: 202408

REACTIONS (1)
  - Liver injury [Unknown]

NARRATIVE: CASE EVENT DATE: 20240301
